FAERS Safety Report 4975466-9 (Version None)
Quarter: 2006Q2

REPORT INFORMATION
  Report Type: 
  Country: None (occurrence: None)
  Receive Date: 20060410
  Receipt Date: 20060330
  Transmission Date: 20061013
  Serious: Yes (Death)
  Sender: FDA-Public Use
  Company Number: FR-2006-007156

PATIENT
  Age: 71 Year
  Sex: Male

DRUGS (8)
  1. ULTRAVIST (PHARMACY BULK) [Suspect]
     Indication: COMPUTERISED TOMOGRAM
     Dosage: 1 DOSE, INTRAVENOUS
     Route: 036
     Dates: start: 20060211, end: 20060211
  2. AMARYL [Concomitant]
  3. ATORVASTATIN CALCIUM [Concomitant]
  4. COZAAR [Concomitant]
  5. ALDACTONE [Concomitant]
  6. PRAZOSIN HCL [Concomitant]
  7. MEDIATOR (BENFLUOREX HYDROCHLORIDE) [Concomitant]
  8. ASPEGIC 1000 [Concomitant]

REACTIONS (7)
  - ASPIRATION [None]
  - CARDIAC FAILURE [None]
  - GASTROINTESTINAL NECROSIS [None]
  - HYPOXIA [None]
  - INTESTINAL ISCHAEMIA [None]
  - PROCEDURAL COMPLICATION [None]
  - VOMITING [None]
